FAERS Safety Report 5128404-2 (Version None)
Quarter: 2006Q4

REPORT INFORMATION
  Report Type: 
  Country: None (occurrence: None)
  Receive Date: 20061011
  Receipt Date: 20060920
  Transmission Date: 20070319
  Serious: Yes (Other)
  Sender: FDA-Public Use
  Company Number: US200609005039

PATIENT
  Sex: Female

DRUGS (4)
  1. PROZAC [Suspect]
     Indication: FIBROMYALGIA
     Dosage: 60 MG, ORAL; SEE IMAGE
     Route: 048
     Dates: start: 19800101
  2. ATENOLOL [Concomitant]
  3. ZOCOR [Concomitant]
  4. LASIX [Concomitant]

REACTIONS (2)
  - ARTERIAL STENT INSERTION [None]
  - HEART VALVE REPLACEMENT [None]
